FAERS Safety Report 6614341-0 (Version None)
Quarter: 2010Q1

REPORT INFORMATION
  Report Type: 
  Country: None (occurrence: None)
  Receive Date: 20100303
  Receipt Date: 20100303
  Transmission Date: 20100710
  Serious: Yes (Hospitalization)
  Sender: FDA-Public Use
  Company Number: None

PATIENT
  Sex: Male
  Weight: 10 kg

DRUGS (4)
  1. CARBOPLATIN [Suspect]
     Dosage: 968 MG
  2. ETOPOSIDE [Suspect]
     Dosage: 772 MG
  3. G-CSF (FILGRASTRIM, AMGEN) [Suspect]
     Dosage: 540 MCG
  4. MELPHALAN HYDROCHLORIDE [Suspect]
     Dosage: 120 MG

REACTIONS (19)
  - ABDOMINAL COMPARTMENT SYNDROME [None]
  - ABDOMINAL DISTENSION [None]
  - APNOEA [None]
  - BRADYCARDIA [None]
  - CARDIO-RESPIRATORY ARREST [None]
  - ERYTHEMA [None]
  - GALLBLADDER DISORDER [None]
  - GASTROINTESTINAL OEDEMA [None]
  - HYPERNATRAEMIA [None]
  - HYPOPHOSPHATAEMIA [None]
  - HYPOTENSION [None]
  - HYPOXIA [None]
  - ILEUS [None]
  - INTESTINAL PERFORATION [None]
  - MUCOSAL INFLAMMATION [None]
  - TACHYPNOEA [None]
  - UNRESPONSIVE TO STIMULI [None]
  - VOMITING [None]
  - WHITE BLOOD CELL COUNT DECREASED [None]
